FAERS Safety Report 17275919 (Version 2)
Quarter: 2020Q3

REPORT INFORMATION
  Report Type: Report from Study
  Country: US (occurrence: US)
  Receive Date: 20200116
  Receipt Date: 20200717
  Transmission Date: 20201102
  Serious: Yes (Death, Hospitalization)
  Sender: FDA-Public Use
  Company Number: NVSC2020US008687

PATIENT
  Age: 27 Year
  Sex: Male
  Weight: 43.6 kg

DRUGS (6)
  1. CYCLOSERINE. [Concomitant]
     Active Substance: CYCLOSERINE
     Indication: TUBERCULOSIS
     Dosage: 500 MG
     Route: 065
     Dates: start: 20190806, end: 20190918
  2. MOXIFLOXACIN. [Concomitant]
     Active Substance: MOXIFLOXACIN
     Indication: TUBERCULOSIS
     Dosage: 400 MG
     Route: 065
     Dates: start: 20190806, end: 20190918
  3. AMIKACIN. [Concomitant]
     Active Substance: AMIKACIN
     Indication: PRODUCT USED FOR UNKNOWN INDICATION
     Route: 065
  4. LAMPRENE [Suspect]
     Active Substance: CLOFAZIMINE
     Indication: TUBERCULOSIS
     Dosage: 100 MG, QD
     Route: 048
     Dates: start: 20180910, end: 20190918
  5. LINEZOLID. [Concomitant]
     Active Substance: LINEZOLID
     Indication: TUBERCULOSIS
     Dosage: 600 MG
     Route: 065
     Dates: start: 20190806, end: 20190918
  6. PYRAZINAMIDE. [Concomitant]
     Active Substance: PYRAZINAMIDE
     Indication: TUBERCULOSIS
     Dosage: 1000 MG
     Route: 065
     Dates: start: 20190806, end: 20190918

REACTIONS (6)
  - Respiratory failure [Fatal]
  - Dyspnoea [Fatal]
  - Fatigue [Fatal]
  - Cardio-respiratory arrest [Fatal]
  - Tuberculosis [Fatal]
  - Chest pain [Fatal]

NARRATIVE: CASE EVENT DATE: 20190905
